FAERS Safety Report 25984816 (Version 4)
Quarter: 2025Q4

REPORT INFORMATION
  Report Type: Spontaneous
  Country: US (occurrence: US)
  Receive Date: 20251031
  Receipt Date: 20251120
  Transmission Date: 20260118
  Serious: No
  Sender: TRAVERE THERAPEUTICS
  Company Number: US-TRAVERE-2025TVT01772

PATIENT
  Age: 32 Year
  Sex: Female

DRUGS (2)
  1. FILSPARI [Suspect]
     Active Substance: SPARSENTAN
     Indication: IgA nephropathy
     Route: 048
     Dates: start: 20250914
  2. TARPEYO [Concomitant]
     Active Substance: BUDESONIDE

REACTIONS (10)
  - Nasal congestion [Unknown]
  - Fatigue [None]
  - Blood pressure decreased [None]
  - Nasopharyngitis [Unknown]
  - Weight decreased [Unknown]
  - Cough [Unknown]
  - Illness [Unknown]
  - Dyspnoea [Unknown]
  - Pruritus [Unknown]
  - Presyncope [Unknown]

NARRATIVE: CASE EVENT DATE: 20250929
